FAERS Safety Report 8512349-1 (Version None)
Quarter: 2012Q3

REPORT INFORMATION
  Report Type: 
  Country: None (occurrence: None)
  Receive Date: 20120716
  Receipt Date: 20120711
  Transmission Date: 20120928
  Serious: Yes (Hospitalization)
  Sender: FDA-Public Use
  Company Number: PHHY2012FR059913

PATIENT
  Sex: Male

DRUGS (7)
  1. METFORMIN HCL [Suspect]
     Indication: TYPE 2 DIABETES MELLITUS
     Dosage: 3 DF, DAILY
     Route: 048
  2. VICTOZA [Suspect]
     Route: 058
  3. CELIPROLOL [Suspect]
     Indication: HYPERTENSION
     Dosage: 200 MG, DAILY
     Route: 048
  4. LERCANIDIPINE [Suspect]
     Indication: HYPERTENSION
     Route: 048
  5. ASPIRIN [Suspect]
     Route: 048
  6. VALSARTAN  AND HYDROCHLOROTHIAZIDE [Suspect]
     Indication: HYPERTENSION
     Dosage: 1 DF, DAILY
     Route: 048
     Dates: end: 20120626
  7. ATORVASTATIN [Suspect]
     Dosage: 1 DF,DAILY
     Route: 048

REACTIONS (10)
  - ANGIOEDEMA [None]
  - MALAISE [None]
  - DYSKINESIA [None]
  - FACE OEDEMA [None]
  - LARYNGEAL OEDEMA [None]
  - PRURITUS [None]
  - ERYTHEMA [None]
  - LIP OEDEMA [None]
  - HYPOTENSION [None]
  - HEART RATE INCREASED [None]
